FAERS Safety Report 6739326-5 (Version None)
Quarter: 2010Q2

REPORT INFORMATION
  Report Type: 
  Country: None (occurrence: None)
  Receive Date: 20100517
  Receipt Date: 20090609
  Transmission Date: 20101027
  Serious: Yes (Hospitalization)
  Sender: FDA-Public Use
  Company Number: SPV1-2009-01189

PATIENT
  Age: 65 Year
  Sex: Male
  Weight: 83.4 kg

DRUGS (5)
  1. FOSRENOL [Suspect]
     Indication: RENAL FAILURE CHRONIC
     Dosage: 1000 MG, 3X/DAY:TID, ORAL
     Route: 048
     Dates: start: 20080601, end: 20090525
  2. TOPROL-XL [Concomitant]
  3. AVAPRO [Concomitant]
  4. LIPITOR [Concomitant]
  5. METROCAPS (METRONIDAZOLE) [Concomitant]

REACTIONS (1)
  - ABDOMINAL PAIN UPPER [None]
